FAERS Safety Report 6079217-9 (Version None)
Quarter: 2009Q1

REPORT INFORMATION
  Report Type: 
  Country: None (occurrence: None)
  Receive Date: 20090216
  Receipt Date: 20090204
  Transmission Date: 20090719
  Serious: Yes (Other)
  Sender: FDA-Public Use
  Company Number: US-AMGEN-US329951

PATIENT
  Sex: Female
  Weight: 91.7 kg

DRUGS (1)
  1. NPLATE [Suspect]
     Indication: IDIOPATHIC THROMBOCYTOPENIC PURPURA
     Route: 058
     Dates: start: 20081201, end: 20090116

REACTIONS (6)
  - BLOOD URINE PRESENT [None]
  - EPISTAXIS [None]
  - HAEMATOCHEZIA [None]
  - PETECHIAE [None]
  - PLATELET COUNT DECREASED [None]
  - SYSTEMIC LUPUS ERYTHEMATOSUS [None]
